FAERS Safety Report 21909526 (Version 1)
Quarter: 2023Q1

REPORT INFORMATION
  Report Type: Spontaneous
  Country: US (occurrence: None)
  Receive Date: 20230124
  Receipt Date: 20230124
  Transmission Date: 20230418
  Serious: No
  Sender: FDA-Public Use
  Company Number: None

PATIENT
  Age: 76 Year
  Sex: Male

DRUGS (1)
  1. PROTAMINE SULFATE [Suspect]
     Active Substance: PROTAMINE SULFATE
     Dosage: 10 MG ONCE IV
     Route: 042
     Dates: start: 20220912, end: 20220912

REACTIONS (1)
  - Hypotension [None]

NARRATIVE: CASE EVENT DATE: 20220912
